FAERS Safety Report 6970183-8 (Version None)
Quarter: 2010Q3

REPORT INFORMATION
  Report Type: 
  Country: None (occurrence: None)
  Receive Date: 20100908
  Receipt Date: 20100903
  Transmission Date: 20110219
  Serious: Yes (Hospitalization)
  Sender: FDA-Public Use
  Company Number: FR-SANOFI-AVENTIS-2009SA000466

PATIENT
  Age: 83 Year
  Sex: Male

DRUGS (10)
  1. RIFATER [Suspect]
     Dosage: DOSE:5 UNIT(S)
     Route: 048
     Dates: start: 20090513, end: 20090807
  2. RIFAMATE [Suspect]
     Route: 048
     Dates: start: 20090824, end: 20090826
  3. MYAMBUTOL [Suspect]
     Route: 048
     Dates: start: 20090513, end: 20090717
  4. VITAMINES B1 B6 [Concomitant]
     Indication: PRODUCT USED FOR UNKNOWN INDICATION
     Dosage: DOSE:3 UNIT(S)
     Route: 048
     Dates: start: 20090601
  5. TARDYFERON [Concomitant]
     Route: 048
     Dates: start: 20090601, end: 20090807
  6. LASIX [Concomitant]
     Route: 048
     Dates: start: 20090601
  7. DIFFU K [Concomitant]
     Indication: PRODUCT USED FOR UNKNOWN INDICATION
     Route: 048
     Dates: start: 20090601
  8. MOPRAL [Concomitant]
     Indication: GASTRIC TUBE RECONSTRUCTION
     Route: 048
     Dates: start: 20090601, end: 20090807
  9. LORAZEPAM [Concomitant]
     Indication: PRODUCT USED FOR UNKNOWN INDICATION
     Route: 048
  10. SOLUPRED [Concomitant]
     Dates: start: 20090513, end: 20090710

REACTIONS (5)
  - DRUG RASH WITH EOSINOPHILIA AND SYSTEMIC SYMPTOMS [None]
  - EOSINOPHILIA [None]
  - ERYTHEMA [None]
  - HEPATIC ENZYME INCREASED [None]
  - HYPERTHERMIA [None]
